FAERS Safety Report 4308074-3 (Version None)
Quarter: 2004Q1

REPORT INFORMATION
  Report Type: 
  Country: None (occurrence: None)
  Receive Date: 20040301
  Receipt Date: 20030428
  Transmission Date: 20041129
  Serious: No
  Sender: FDA-Public Use
  Company Number: US-BRISTOL-MYERS SQUIBB COMPANY-12256814

PATIENT
  Age: 52 Year
  Sex: Female
  Weight: 87 kg

DRUGS (3)
  1. GLUCOPHAGE [Suspect]
     Indication: DIABETES MELLITUS
     Dosage: RECENTLY INCREASED FROM 500MG DAILY
     Route: 048
     Dates: start: 20010101
  2. PRANDIN [Concomitant]
  3. VASOTEC [Concomitant]

REACTIONS (3)
  - FEELING COLD [None]
  - MYALGIA [None]
  - TREMOR [None]
